FAERS Safety Report 5391770-7 (Version None)
Quarter: 2007Q3

REPORT INFORMATION
  Report Type: 
  Country: None (occurrence: None)
  Receive Date: 20070717
  Receipt Date: 20070705
  Transmission Date: 20080115
  Serious: Yes (Other)
  Sender: FDA-Public Use
  Company Number: 16949

PATIENT
  Sex: Male

DRUGS (3)
  1. CISPLATIN [Suspect]
     Indication: GASTRIC CANCER
     Dates: start: 20070215
  2. EPIRUBICIN [Suspect]
     Indication: GASTRIC CANCER
     Dates: start: 20070215
  3. XELODA [Suspect]
     Indication: GASTRIC CANCER
     Dates: start: 20070215

REACTIONS (2)
  - DIARRHOEA [None]
  - NEUTROPENIC SEPSIS [None]
